FAERS Safety Report 9784089 (Version 3)
Quarter: 2014Q1

REPORT INFORMATION
  Report Type: Spontaneous
  Country: US (occurrence: US)
  Receive Date: 20131226
  Receipt Date: 20140203
  Transmission Date: 20141002
  Serious: Yes (Hospitalization, Other)
  Sender: FDA-Public Use
  Company Number: US-PFIZER INC-2013364961

PATIENT
  Age: 60 Year
  Sex: Male
  Weight: 63.49 kg

DRUGS (2)
  1. REVATIO [Suspect]
     Dosage: UNK
     Dates: start: 20130524
  2. LETAIRIS [Suspect]
     Indication: PULMONARY ARTERIAL HYPERTENSION
     Dosage: 10 MG, 1X/DAY
     Dates: start: 20130524

REACTIONS (4)
  - Hypoxia [Unknown]
  - Cardiac failure [Unknown]
  - Oedema peripheral [Recovering/Resolving]
  - Fluid retention [Unknown]
